FAERS Safety Report 5284149-X (Version None)
Quarter: 2007Q2

REPORT INFORMATION
  Report Type: 
  Country: None (occurrence: None)
  Receive Date: 20070403
  Receipt Date: 20070323
  Transmission Date: 20071010
  Serious: Yes (Hospitalization)
  Sender: FDA-Public Use
  Company Number: US-JNJFOC-20060406240

PATIENT
  Sex: Female
  Weight: 60.78 kg

DRUGS (4)
  1. DURAGESIC-100 [Suspect]
     Indication: PELVIC PAIN
     Dosage: 50 UG/HR PLUS 100 UG/HR PATCH
     Route: 062
  2. PROZAC [Concomitant]
     Indication: DEPRESSION
     Route: 048
  3. LAMICTAL [Concomitant]
     Indication: DEPRESSION
  4. AMBIEN [Concomitant]
     Dosage: 1 EVERY NIGHT, AS NEEDED
     Route: 048

REACTIONS (15)
  - AGEUSIA [None]
  - APPLICATION SITE ERYTHEMA [None]
  - APPLICATION SITE IRRITATION [None]
  - APPLICATION SITE SCAB [None]
  - BACK PAIN [None]
  - BODY DYSMORPHIC DISORDER [None]
  - BRAIN NEOPLASM BENIGN [None]
  - DEPRESSION [None]
  - INSOMNIA [None]
  - INTERVERTEBRAL DISC PROTRUSION [None]
  - LIBIDO DECREASED [None]
  - LOSS OF LIBIDO [None]
  - PELVIC PAIN [None]
  - WEIGHT INCREASED [None]
  - WRONG TECHNIQUE IN DRUG USAGE PROCESS [None]
